FAERS Safety Report 26023408 (Version 1)
Quarter: 2025Q4

REPORT INFORMATION
  Report Type: Spontaneous
  Country: US (occurrence: US)
  Receive Date: 20251110
  Receipt Date: 20251110
  Transmission Date: 20260117
  Serious: No
  Sender: STRIDES
  Company Number: US-STRIDES ARCOLAB LIMITED-2025SP011756

PATIENT
  Age: 8 Decade
  Sex: Male

DRUGS (6)
  1. GABAPENTIN [Suspect]
     Active Substance: GABAPENTIN
     Indication: Erythromelalgia
     Dosage: 300 MILLIGRAM, TID
     Route: 065
  2. GABAPENTIN [Suspect]
     Active Substance: GABAPENTIN
     Indication: Hypergammaglobulinaemia benign monoclonal
  3. PREDNISONE [Suspect]
     Active Substance: PREDNISONE
     Indication: Erythromelalgia
     Dosage: UNK, TAPERING DOSES
     Route: 065
  4. PREDNISONE [Suspect]
     Active Substance: PREDNISONE
     Indication: Hypergammaglobulinaemia benign monoclonal
  5. AMITRIPTYLINE [Suspect]
     Active Substance: AMITRIPTYLINE
     Indication: Erythromelalgia
     Dosage: UNK
     Route: 065
  6. AMITRIPTYLINE [Suspect]
     Active Substance: AMITRIPTYLINE
     Indication: Hypergammaglobulinaemia benign monoclonal

REACTIONS (2)
  - Brain fog [Unknown]
  - Off label use [Unknown]
